FAERS Safety Report 8564816-2 (Version None)
Quarter: 2012Q3

REPORT INFORMATION
  Report Type: 
  Country: None (occurrence: None)
  Receive Date: 20120803
  Receipt Date: 20120719
  Transmission Date: 20120928
  Serious: No
  Sender: FDA-Public Use
  Company Number: US-ASTRAZENECA-2012SE50791

PATIENT
  Age: 66 Year
  Sex: Female
  Weight: 99.8 kg

DRUGS (8)
  1. SYMBICORT [Suspect]
     Dosage: 160/4.5, TWO PUFFS BID
     Route: 055
  2. LOSARTEN [Concomitant]
  3. GLUCOPHAGE [Concomitant]
  4. METFORMIN HCL [Concomitant]
  5. ONGLYZA [Concomitant]
  6. GLYBURIDE [Concomitant]
  7. DILTIAZEM [Concomitant]
  8. LEVOXYL [Concomitant]

REACTIONS (2)
  - OFF LABEL USE [None]
  - OROPHARYNGEAL PAIN [None]
